FAERS Safety Report 7578987-8 (Version None)
Quarter: 2011Q2

REPORT INFORMATION
  Report Type: 
  Country: None (occurrence: None)
  Receive Date: 20110628
  Receipt Date: 20100312
  Transmission Date: 20111010
  Serious: Yes (Other)
  Sender: FDA-Public Use
  Company Number: GB-PFIZER INC-2011139545

PATIENT
  Age: 68 Year
  Sex: Female

DRUGS (2)
  1. VANCOMYCIN HCL [Suspect]
     Dosage: UNK
     Route: 042
  2. FUROSEMIDE [Suspect]

REACTIONS (3)
  - DRUG INTERACTION [None]
  - HYPOKALAEMIA [None]
  - CARDIAC ARREST [None]
